FAERS Safety Report 6184983-8 (Version None)
Quarter: 2009Q2

REPORT INFORMATION
  Report Type: 
  Country: None (occurrence: None)
  Receive Date: 20090511
  Receipt Date: 20090227
  Transmission Date: 20091009
  Serious: No
  Sender: FDA-Public Use
  Company Number: A0770913A

PATIENT
  Age: 78 Year
  Sex: Female

DRUGS (5)
  1. COREG CR [Suspect]
     Indication: ARRHYTHMIA
     Dosage: 20MG PER DAY
     Route: 048
     Dates: start: 20090220
  2. NEURONTIN [Concomitant]
  3. XOPENEX [Concomitant]
  4. ADVAIR HFA [Concomitant]
     Route: 055
  5. ASPIRIN [Concomitant]

REACTIONS (3)
  - NECK PAIN [None]
  - PAIN IN EXTREMITY [None]
  - VISION BLURRED [None]
